FAERS Safety Report 17954939 (Version 2)
Quarter: 2020Q4

REPORT INFORMATION
  Report Type: Report from Study
  Country: US (occurrence: US)
  Receive Date: 20200629
  Receipt Date: 20201124
  Transmission Date: 20210113
  Serious: Yes (Other)
  Sender: FDA-Public Use
  Company Number: US-JAZZ-2019-US-011014

PATIENT
  Sex: Male

DRUGS (30)
  1. ARIPIPRAZOLE. [Concomitant]
     Active Substance: ARIPIPRAZOLE
  2. RITALIN [Concomitant]
     Active Substance: METHYLPHENIDATE HYDROCHLORIDE
  3. TOPIRAMATE. [Concomitant]
     Active Substance: TOPIRAMATE
  4. FLUOXETINE HCL [Concomitant]
     Active Substance: FLUOXETINE HYDROCHLORIDE
  5. ZOLMITRIPTAN. [Concomitant]
     Active Substance: ZOLMITRIPTAN
  6. GLICLAZIDE [Concomitant]
     Active Substance: GLICLAZIDE
  7. FISH OIL CONCENTRATE [Concomitant]
     Active Substance: FISH OIL
  8. FLONASE ALLERGY RELIEF [Concomitant]
     Active Substance: FLUTICASONE PROPIONATE
  9. NASONEX [Concomitant]
     Active Substance: MOMETASONE FUROATE
  10. MODAFINIL. [Concomitant]
     Active Substance: MODAFINIL
  11. RIBOFLAVIN [Concomitant]
     Active Substance: RIBOFLAVIN
  12. SINGULAIR [Concomitant]
     Active Substance: MONTELUKAST SODIUM
  13. VITAMIN D2 [Concomitant]
     Active Substance: ERGOCALCIFEROL
  14. CYMBALTA [Concomitant]
     Active Substance: DULOXETINE HYDROCHLORIDE
  15. METOPROLOL SUCCINATE. [Concomitant]
     Active Substance: METOPROLOL SUCCINATE
  16. OMEPRAZOLE. [Concomitant]
     Active Substance: OMEPRAZOLE
  17. XYREM [Suspect]
     Active Substance: SODIUM OXYBATE
     Indication: NARCOLEPSY
     Dosage: 2.25 G, BID
     Route: 048
     Dates: start: 201202, end: 201202
  18. ZIPRASIDONE HYDROCHLORIDE. [Concomitant]
     Active Substance: ZIPRASIDONE HYDROCHLORIDE
  19. NAPROXEN. [Concomitant]
     Active Substance: NAPROXEN
  20. NUVIGIL [Concomitant]
     Active Substance: ARMODAFINIL
  21. PROAIR HFA [Concomitant]
     Active Substance: ALBUTEROL SULFATE
  22. XYREM [Suspect]
     Active Substance: SODIUM OXYBATE
     Indication: CATAPLEXY
     Dosage: DOSE ADJUSTMENT
     Route: 048
     Dates: start: 201202, end: 201310
  23. COENZYME Q10 [Concomitant]
     Active Substance: DIETARY SUPPLEMENT\UBIDECARENONE
  24. PREDNISONE. [Concomitant]
     Active Substance: PREDNISONE
  25. RESTASIS [Concomitant]
     Active Substance: CYCLOSPORINE
  26. XYREM [Suspect]
     Active Substance: SODIUM OXYBATE
     Dosage: 4.5 G, BID
     Route: 048
     Dates: start: 201310
  27. ALLEGRA ALLERGY [Concomitant]
     Active Substance: FEXOFENADINE HYDROCHLORIDE
  28. ATORVASTATIN [Concomitant]
     Active Substance: ATORVASTATIN
  29. SUMATRIPTAN SUCCINATE. [Concomitant]
     Active Substance: SUMATRIPTAN SUCCINATE
  30. SYMBICORT [Concomitant]
     Active Substance: BUDESONIDE\FORMOTEROL FUMARATE DIHYDRATE

REACTIONS (3)
  - Schizoaffective disorder [Unknown]
  - Condition aggravated [Unknown]
  - Mental disorder [Not Recovered/Not Resolved]
